FAERS Safety Report 7435071-1 (Version None)
Quarter: 2011Q2

REPORT INFORMATION
  Report Type: 
  Country: None (occurrence: None)
  Receive Date: 20110418
  Receipt Date: 20110418
  Transmission Date: 20111010
  Serious: Yes (Hospitalization)
  Sender: FDA-Public Use
  Company Number: JPI-P-014473

PATIENT
  Age: 64 Year
  Sex: Female
  Weight: 95.2554 kg

DRUGS (4)
  1. XYREM [Suspect]
     Indication: NARCOLEPSY
     Dosage: 4.5 GM (2.25 GM,2 IN 1 D),ORAL, 6 GM (3 GM,2 IN 1 D),ORAL, 3 GM (3 GM,1 IN 1 D),ORAL
     Route: 048
     Dates: start: 20100426, end: 20110402
  2. XYREM [Suspect]
     Indication: NARCOLEPSY
     Dosage: 4.5 GM (2.25 GM,2 IN 1 D),ORAL, 6 GM (3 GM,2 IN 1 D),ORAL, 3 GM (3 GM,1 IN 1 D),ORAL
     Route: 048
     Dates: start: 20110404, end: 20110404
  3. XYREM [Suspect]
     Indication: NARCOLEPSY
     Dosage: 4.5 GM (2.25 GM,2 IN 1 D),ORAL, 6 GM (3 GM,2 IN 1 D),ORAL, 3 GM (3 GM,1 IN 1 D),ORAL
     Route: 048
     Dates: start: 20091022
  4. ARMODAFINIL [Concomitant]

REACTIONS (3)
  - NASOPHARYNGITIS [None]
  - GALLBLADDER DISORDER [None]
  - PANCREATITIS [None]
